FAERS Safety Report 15741120 (Version 4)
Quarter: 2019Q1

REPORT INFORMATION
  Report Type: Spontaneous
  Country: US (occurrence: US)
  Receive Date: 20181219
  Receipt Date: 20190215
  Transmission Date: 20190417
  Serious: No
  Sender: FDA-Public Use
  Company Number: US-SA-2018SA344614

PATIENT
  Age: 59 Year
  Sex: Male
  Weight: 118.82 kg

DRUGS (14)
  1. LOTREL T [Concomitant]
  2. TRAZODONE [Concomitant]
     Active Substance: TRAZODONE HYDROCHLORIDE
  3. DUPIXENT [Suspect]
     Active Substance: DUPILUMAB
     Indication: ECZEMA
     Dosage: 1 DF, QOW
     Route: 058
     Dates: start: 201712, end: 2018
  4. TYLENOL 8HR [Concomitant]
     Active Substance: ACETAMINOPHEN
  5. DUPIXENT [Suspect]
     Active Substance: DUPILUMAB
     Dosage: 1 DF, QOW
     Route: 058
     Dates: start: 2018
  6. MULTIVITAMIN (16) [Concomitant]
     Active Substance: VITAMINS
  7. DUPIXENT [Suspect]
     Active Substance: DUPILUMAB
     Indication: DERMATITIS ATOPIC
     Dosage: 2 DF, 1X
     Route: 058
     Dates: start: 20171208, end: 20171208
  8. IRON [Concomitant]
     Active Substance: IRON
  9. VITAMIN C ACID [Concomitant]
     Active Substance: ASCORBIC ACID
  10. ALLEGRA ALLERGY [Concomitant]
     Active Substance: FEXOFENADINE HYDROCHLORIDE
  11. GLUCOSAMINE + CHONDROITIN COMPLEX [Concomitant]
  12. NEXIUM 1-2-3 [Concomitant]
     Active Substance: AMOXICILLIN\CLARITHROMYCIN\ESOMEPRAZOLE
  13. VITAMIN D [Concomitant]
     Active Substance: CHOLECALCIFEROL
  14. HYDROCHLOROTHIAZIDE. [Concomitant]
     Active Substance: HYDROCHLOROTHIAZIDE

REACTIONS (3)
  - Product dose omission [Recovered/Resolved]
  - Dermatitis [Recovered/Resolved]
  - Device issue [Recovered/Resolved]

NARRATIVE: CASE EVENT DATE: 201805
